FAERS Safety Report 5449994-6 (Version None)
Quarter: 2007Q3

REPORT INFORMATION
  Report Type: 
  Country: None (occurrence: None)
  Receive Date: 20070912
  Receipt Date: 20070903
  Transmission Date: 20080115
  Serious: Yes (Hospitalization)
  Sender: FDA-Public Use
  Company Number: FR-AVENTIS-200712823FR

PATIENT
  Age: 41 Year
  Sex: Male

DRUGS (12)
  1. NASACORT [Suspect]
     Route: 045
     Dates: end: 20070802
  2. INIPOMP                            /01263201/ [Concomitant]
  3. SERESTA [Concomitant]
  4. MOTILYO [Concomitant]
  5. KETOPROFEN [Concomitant]
     Route: 048
     Dates: start: 20070301
  6. EFFERALGAN CODEINE [Concomitant]
     Route: 048
     Dates: start: 20070301
  7. CONTRAMAL [Concomitant]
     Route: 048
     Dates: start: 20070301
  8. PROPOFAN                           /00765201/ [Concomitant]
     Route: 048
     Dates: start: 20070301
  9. MEDROL [Concomitant]
     Route: 048
     Dates: start: 20070301, end: 20070301
  10. BIRODOGYL [Concomitant]
     Route: 048
     Dates: start: 20070430, end: 20070505
  11. BIRODOGYL [Concomitant]
     Route: 048
     Dates: start: 20070608, end: 20070614
  12. BIRODOGYL [Concomitant]
     Route: 048
     Dates: start: 20070711, end: 20070719

REACTIONS (1)
  - OSTEOPENIA [None]
